FAERS Safety Report 6317544-8 (Version None)
Quarter: 2009Q3

REPORT INFORMATION
  Report Type: 
  Country: None (occurrence: None)
  Receive Date: 20090820
  Receipt Date: 20090820
  Transmission Date: 20100115
  Serious: Yes (Hospitalization)
  Sender: FDA-Public Use
  Company Number: None

PATIENT
  Age: 66 Year
  Sex: Male
  Weight: 75.7507 kg

DRUGS (3)
  1. PACLITAXEL [Suspect]
     Indication: GLIOSARCOMA
     Dosage: 97.4MG WEEKLY IV
     Route: 042
     Dates: start: 20090730
  2. PACLITAXEL [Suspect]
     Indication: GLIOSARCOMA
     Dosage: 97.4MG WEEKLY IV
     Route: 042
     Dates: start: 20090806
  3. TEMODAR [Suspect]
     Dosage: DAILY PO 140MG
     Route: 048
     Dates: start: 20090730, end: 20090811

REACTIONS (3)
  - ASTHENIA [None]
  - DECREASED APPETITE [None]
  - DEHYDRATION [None]
